FAERS Safety Report 16042972 (Version 1)
Quarter: 2019Q1

REPORT INFORMATION
  Report Type: Spontaneous
  Country: NL (occurrence: NL)
  Receive Date: 20190306
  Receipt Date: 20190306
  Transmission Date: 20190418
  Serious: Yes (Other)
  Sender: FDA-Public Use
  Company Number: NL-MYLANLABS-2019M1020480

PATIENT
  Age: 83 Year
  Sex: Male

DRUGS (1)
  1. CARBIDOPA/LEVODOPA [Suspect]
     Active Substance: CARBIDOPA\LEVODOPA
     Indication: PARKINSON^S DISEASE
     Dosage: UNK, 8 TIMES DAILY

REACTIONS (4)
  - Pneumonia aspiration [Unknown]
  - Dysphagia [Unknown]
  - General physical health deterioration [Unknown]
  - Delirium [Unknown]
